FAERS Safety Report 18059586 (Version 1)
Quarter: 2020Q3

REPORT INFORMATION
  Report Type: Spontaneous
  Country: FR (occurrence: FR)
  Receive Date: 20200723
  Receipt Date: 20200723
  Transmission Date: 20201103
  Serious: Yes (Hospitalization)
  Sender: FDA-Public Use
  Company Number: FR-PFIZER INC-2020277863

PATIENT
  Age: 55 Year
  Sex: Female
  Weight: 51 kg

DRUGS (2)
  1. XANAX [Suspect]
     Active Substance: ALPRAZOLAM
     Indication: POISONING DELIBERATE
     Dosage: UNK (2 BOXES)
     Route: 048
     Dates: start: 20200622, end: 20200622
  2. SOLIAN [Suspect]
     Active Substance: AMISULPRIDE
     Indication: POISONING DELIBERATE
     Dosage: UNK (AROUND 6 TO 8 TABLETS)
     Route: 048
     Dates: start: 20200622, end: 20200622

REACTIONS (3)
  - Somnolence [Recovered/Resolved]
  - Poisoning deliberate [Recovered/Resolved]
  - Hypothermia [Recovered/Resolved]

NARRATIVE: CASE EVENT DATE: 20200622
